FAERS Safety Report 8078454-1 (Version None)
Quarter: 2012Q1

REPORT INFORMATION
  Report Type: 
  Country: None (occurrence: None)
  Receive Date: 20120127
  Receipt Date: 20110124
  Transmission Date: 20120608
  Serious: Yes (Hospitalization)
  Sender: FDA-Public Use
  Company Number: US-ABBOTT-10P-163-0677498-00

PATIENT
  Sex: Female
  Weight: 69.462 kg

DRUGS (5)
  1. HUMIRA [Suspect]
     Dates: start: 20101001, end: 20101101
  2. ALPRAZOLAM [Concomitant]
     Indication: ANXIETY
  3. ASPIRIN [Concomitant]
     Indication: PRODUCT USED FOR UNKNOWN INDICATION
  4. HUMIRA [Suspect]
     Indication: RHEUMATOID ARTHRITIS
     Dates: start: 20080901, end: 20101001
  5. HUMIRA [Suspect]
     Dates: start: 20101201

REACTIONS (9)
  - RASH MACULAR [None]
  - SKIN EXFOLIATION [None]
  - BREAST CANCER [None]
  - RHEUMATOID ARTHRITIS [None]
  - PAIN [None]
  - BITE [None]
  - HYPERTENSION [None]
  - ALOPECIA [None]
  - DRY SKIN [None]
